FAERS Safety Report 6485387-0 (Version None)
Quarter: 2009Q4

REPORT INFORMATION
  Report Type: 
  Country: None (occurrence: None)
  Receive Date: 20091209
  Receipt Date: 20090622
  Transmission Date: 20100525
  Serious: No
  Sender: FDA-Public Use
  Company Number: US-AMGEN-KDL352673

PATIENT
  Sex: Female

DRUGS (5)
  1. ENBREL [Suspect]
     Indication: RHEUMATOID ARTHRITIS
     Route: 058
     Dates: start: 20060121, end: 20090611
  2. PLAQUENIL [Concomitant]
     Route: 048
     Dates: start: 20050521
  3. PROZAC [Concomitant]
  4. NEXIUM [Concomitant]
  5. IBUPROFEN [Concomitant]

REACTIONS (3)
  - DYSGEUSIA [None]
  - INJECTION SITE PAIN [None]
  - PAIN IN EXTREMITY [None]
